FAERS Safety Report 5069628-2 (Version None)
Quarter: 2006Q3

REPORT INFORMATION
  Report Type: 
  Country: None (occurrence: None)
  Receive Date: 20060803
  Receipt Date: 20050718
  Transmission Date: 20061208
  Serious: No
  Sender: FDA-Public Use
  Company Number: US-BRISTOL-MYERS SQUIBB COMPANY-13041041

PATIENT
  Age: 81 Year
  Sex: Male

DRUGS (2)
  1. CEFADROXIL [Suspect]
     Indication: INFECTION
     Route: 048
     Dates: start: 20041026
  2. RIFAMPIN [Concomitant]

REACTIONS (1)
  - TOOTH DISCOLOURATION [None]
